FAERS Safety Report 6717747-4 (Version None)
Quarter: 2010Q2

REPORT INFORMATION
  Report Type: 
  Country: None (occurrence: None)
  Receive Date: 20100504
  Receipt Date: 20100422
  Transmission Date: 20101027
  Serious: Yes (Other)
  Sender: FDA-Public Use
  Company Number: MIN-00562

PATIENT
  Age: 56 Year
  Sex: Female
  Weight: 62.1 kg

DRUGS (6)
  1. MINOCYCLINE HCL [Suspect]
     Indication: ROSACEA
     Dosage: 50 MG, BID
     Dates: start: 20090320, end: 20090320
  2. DRISDOL [Suspect]
     Indication: BLOOD CALCIUM DECREASED
     Dosage: 50000 INTERNATIONAL UNITS, ONCE ORAL
     Route: 048
     Dates: start: 20090319, end: 20090319
  3. DRISDOL [Suspect]
     Indication: VITAMIN D DECREASED
     Dosage: 50000 INTERNATIONAL UNITS, ONCE ORAL
     Route: 048
     Dates: start: 20090319, end: 20090319
  4. ERYTHROMYCIN [Suspect]
     Indication: ROSACEA
     Dosage: 400 MG, BID, ORAL
     Route: 048
     Dates: start: 20090319, end: 20090324
  5. XANAX [Concomitant]
  6. VITAMIN D [Concomitant]

REACTIONS (22)
  - ABDOMINAL PAIN [None]
  - ABNORMAL FAECES [None]
  - ANXIETY [None]
  - APHASIA [None]
  - BLOOD 25-HYDROXYCHOLECALCIFEROL DECREASED [None]
  - BLOOD CALCIUM INCREASED [None]
  - BLOOD SODIUM INCREASED [None]
  - CHEST DISCOMFORT [None]
  - CHOKING SENSATION [None]
  - CYST [None]
  - DIARRHOEA [None]
  - DYSPHAGIA [None]
  - DYSPNOEA [None]
  - GRIEF REACTION [None]
  - HYPERSENSITIVITY [None]
  - HYPOPHAGIA [None]
  - PALPITATIONS [None]
  - PANIC ATTACK [None]
  - PARASITE STOOL TEST POSITIVE [None]
  - PHARYNGEAL OEDEMA [None]
  - SOFT TISSUE DISORDER [None]
  - WEIGHT DECREASED [None]
